FAERS Safety Report 6329016-5 (Version None)
Quarter: 2009Q3

REPORT INFORMATION
  Report Type: 
  Country: None (occurrence: None)
  Receive Date: 20090826
  Receipt Date: 20090817
  Transmission Date: 20100115
  Serious: Yes (Death)
  Sender: FDA-Public Use
  Company Number: US-JNJFOC-20090602259

PATIENT
  Sex: Male
  Weight: 58.06 kg

DRUGS (10)
  1. REMICADE [Suspect]
     Route: 042
  2. REMICADE [Suspect]
     Indication: RHEUMATOID ARTHRITIS
     Route: 042
  3. CELEBREX [Concomitant]
  4. FLOMAX [Concomitant]
     Indication: PROSTATIC DISORDER
  5. METHOTREXATE [Concomitant]
  6. AVAPRO [Concomitant]
  7. GLYBURIDE [Concomitant]
     Indication: DIABETES MELLITUS
  8. NORVASC [Concomitant]
  9. DIAZEPAM [Concomitant]
  10. CALCIUM WITH VITAMIN D [Concomitant]

REACTIONS (1)
  - LUNG ADENOCARCINOMA METASTATIC [None]
